FAERS Safety Report 11446500 (Version 1)
Quarter: 2015Q3

REPORT INFORMATION
  Report Type: Spontaneous
  Country: US (occurrence: US)
  Receive Date: 20150831
  Receipt Date: 20150831
  Transmission Date: 20151125
  Serious: No
  Sender: FDA-Public Use
  Company Number: US-ELI_LILLY_AND_COMPANY-US200901002723

PATIENT
  Sex: Female

DRUGS (6)
  1. TRAMADOL. [Concomitant]
     Active Substance: TRAMADOL
  2. NAPROXEN SODIUM. [Concomitant]
     Active Substance: NAPROXEN SODIUM
  3. CYMBALTA [Suspect]
     Active Substance: DULOXETINE HYDROCHLORIDE
     Indication: PAIN
     Dosage: 30 MG, UNK
     Dates: start: 20080916
  4. WELLBUTRIN [Concomitant]
     Active Substance: BUPROPION HYDROCHLORIDE
  5. ALPRAZOLAM. [Concomitant]
     Active Substance: ALPRAZOLAM
     Dosage: 0.5 MG, UNK
  6. LIDOCAINE. [Concomitant]
     Active Substance: LIDOCAINE

REACTIONS (2)
  - Pain in jaw [Unknown]
  - Bruxism [Unknown]

NARRATIVE: CASE EVENT DATE: 2008
